FAERS Safety Report 21055167 (Version 1)
Quarter: 2022Q3

REPORT INFORMATION
  Report Type: Spontaneous
  Country: AU (occurrence: AU)
  Receive Date: 20220707
  Receipt Date: 20220707
  Transmission Date: 20221027
  Serious: Yes (Other)
  Sender: FDA-Public Use
  Company Number: AU-STRIDES ARCOLAB LIMITED-2022SP008439

PATIENT
  Age: 39 Year
  Sex: Male

DRUGS (6)
  1. TRAMADOL [Suspect]
     Active Substance: TRAMADOL
     Indication: Pain
     Dosage: 1 DOSAGE FORM, BID, (SLOW RELEASE 100MG TABLET TWICE DAILY)
     Route: 065
  2. TRAMADOL [Suspect]
     Active Substance: TRAMADOL
     Dosage: UNK, PRN, 50MG ONE TO TWO IMMEDIATE RELEASE TABLETS UP TO THREE TIMES
     Route: 065
  3. TRAMADOL [Suspect]
     Active Substance: TRAMADOL
     Dosage: UNK, (ABUSE) THREE 100MG SLOW RELEASE TABLETS
     Route: 065
  4. TRAMADOL [Suspect]
     Active Substance: TRAMADOL
     Dosage: UNK, (ABUSE) 50MG ONE TO TWO IMMEDIATE RELEASE TABLETS UP TO THREE
     Route: 065
  5. DESVENLAFAXINE [Suspect]
     Active Substance: DESVENLAFAXINE
     Indication: Depression
     Dosage: 50 MILLIGRAM, DAILY
     Route: 065
  6. DESVENLAFAXINE [Suspect]
     Active Substance: DESVENLAFAXINE
     Dosage: UNK, 100 OR 150 MG (ABUSE)
     Route: 065

REACTIONS (2)
  - Acute psychosis [Recovered/Resolved]
  - Drug abuse [Unknown]
